FAERS Safety Report 8029727-X (Version None)
Quarter: 2012Q1

REPORT INFORMATION
  Report Type: 
  Country: None (occurrence: None)
  Receive Date: 20120109
  Receipt Date: 20111230
  Transmission Date: 20120608
  Serious: Yes (Hospitalization)
  Sender: FDA-Public Use
  Company Number: US-BAYER-2012-001310

PATIENT
  Age: 30 Year
  Sex: Female
  Weight: 118 kg

DRUGS (5)
  1. CALCIUM ACETATE [Concomitant]
  2. LORTAB [Concomitant]
     Indication: PAIN
     Dosage: AS NEEDED
  3. ACETAMINOPHEN [Concomitant]
     Dosage: AS NEEDED
  4. YASMIN [Suspect]
  5. DILAUDID [Concomitant]
     Indication: PAIN

REACTIONS (2)
  - PULMONARY EMBOLISM [None]
  - DEEP VEIN THROMBOSIS [None]
